FAERS Safety Report 6435687-5 (Version None)
Quarter: 2009Q4

REPORT INFORMATION
  Report Type: 
  Country: None (occurrence: None)
  Receive Date: 20091111
  Receipt Date: 20091030
  Transmission Date: 20100525
  Serious: Yes (Other)
  Sender: FDA-Public Use
  Company Number: PHEH2009US14846

PATIENT
  Sex: Female

DRUGS (10)
  1. EXJADE [Suspect]
     Indication: MYELODYSPLASTIC SYNDROME
     Dosage: 1500 MG, QD
     Route: 048
     Dates: start: 20090101
  2. EXJADE [Suspect]
     Indication: TRANSFUSION
  3. EXJADE [Suspect]
     Indication: HAEMOSIDEROSIS
  4. PROTONIX [Concomitant]
     Route: 048
  5. DILANTIN                                /AUS/ [Concomitant]
     Route: 048
  6. FOSAMAX [Concomitant]
     Route: 048
  7. ASPIRIN [Concomitant]
     Route: 048
  8. POTASSIUM CHLORIDE [Concomitant]
     Route: 048
  9. LIDODERM [Concomitant]
     Route: 062
  10. OXYCODONE HCL [Concomitant]
     Route: 048

REACTIONS (6)
  - ALANINE AMINOTRANSFERASE INCREASED [None]
  - ASPARTATE AMINOTRANSFERASE INCREASED [None]
  - ASTHENIA [None]
  - BLOOD ALBUMIN DECREASED [None]
  - BLOOD ALKALINE PHOSPHATASE INCREASED [None]
  - BLOOD BILIRUBIN INCREASED [None]
